FAERS Safety Report 9443436 (Version 2)
Quarter: 2013Q4

REPORT INFORMATION
  Report Type: Spontaneous
  Country: JP (occurrence: JP)
  Receive Date: 20130806
  Receipt Date: 20131105
  Transmission Date: 20140711
  Serious: Yes (Hospitalization)
  Sender: FDA-Public Use
  Company Number: JP-GLAXOSMITHKLINE-B0912950A

PATIENT
  Age: 46 Year
  Sex: Female

DRUGS (8)
  1. LAMICTAL [Suspect]
     Indication: BIPOLAR DISORDER
     Dosage: 25MG PER DAY
     Route: 048
     Dates: start: 20130615, end: 20130628
  2. LAMICTAL [Suspect]
     Indication: BIPOLAR DISORDER
     Dosage: 50MG PER DAY
     Route: 048
     Dates: start: 20130629, end: 20130707
  3. FAMOTIDINE [Concomitant]
     Route: 065
  4. UNKNOWN DRUG [Concomitant]
     Indication: PYREXIA
     Route: 048
     Dates: start: 20130705, end: 20130705
  5. ASVERIN [Concomitant]
     Indication: PYREXIA
     Dosage: 1IUAX THREE TIMES PER DAY
     Route: 048
     Dates: start: 20130706, end: 20130708
  6. CLARITH [Concomitant]
     Indication: PYREXIA
     Dosage: 1IUAX TWICE PER DAY
     Route: 048
     Dates: start: 20130706, end: 20130708
  7. COCARL [Concomitant]
     Indication: PYREXIA
     Dosage: 1IUAX TWICE PER DAY
     Route: 048
     Dates: start: 20130706, end: 20130708
  8. CHINESE MEDICINE [Concomitant]
     Indication: PYREXIA
     Dosage: 1IUAX THREE TIMES PER DAY
     Route: 048
     Dates: start: 20130706, end: 20130708

REACTIONS (5)
  - Drug eruption [Recovered/Resolved]
  - Pyrexia [Unknown]
  - Decreased appetite [Unknown]
  - Rash [Unknown]
  - Skin disorder [Unknown]
